FAERS Safety Report 8003434-1 (Version None)
Quarter: 2011Q4

REPORT INFORMATION
  Report Type: 
  Country: None (occurrence: None)
  Receive Date: 20111222
  Receipt Date: 20111222
  Transmission Date: 20120403
  Serious: Yes (Other)
  Sender: FDA-Public Use
  Company Number: None

PATIENT
  Age: 51 Year
  Sex: Female
  Weight: 64.41 kg

DRUGS (7)
  1. DEXILANT [Concomitant]
     Route: 048
  2. CHLOROQUINE [Concomitant]
     Route: 048
  3. CYMBALTA [Suspect]
     Indication: DEPRESSION
     Dosage: 30 MG
     Route: 048
     Dates: start: 20111201, end: 20111213
  4. CYMBALTA [Suspect]
     Indication: PAIN
     Dosage: 30 MG
     Route: 048
     Dates: start: 20111201, end: 20111213
  5. NAPROSYN [Concomitant]
     Route: 048
  6. SPIRONOLACTONE [Concomitant]
     Route: 048
  7. PREDNISONE TAB [Concomitant]
     Route: 048

REACTIONS (1)
  - DRUG ERUPTION [None]
